FAERS Safety Report 5389450-7 (Version None)
Quarter: 2007Q3

REPORT INFORMATION
  Report Type: 
  Country: None (occurrence: None)
  Receive Date: 20070717
  Receipt Date: 20070706
  Transmission Date: 20080115
  Serious: Yes (Death, Hospitalization)
  Sender: FDA-Public Use
  Company Number: US-KINGPHARMUSA00001-K200700858

PATIENT

DRUGS (5)
  1. ALTACE [Suspect]
  2. WARFARIN SODIUM [Suspect]
     Dosage: 3.7 MG, QD
     Dates: start: 20060912
  3. NORVASC [Suspect]
  4. TOPROL-XL [Suspect]
  5. OXYCODONE HCL [Suspect]

REACTIONS (9)
  - DYSARTHRIA [None]
  - FALL [None]
  - HAEMORRHAGE INTRACRANIAL [None]
  - HYPOTENSION [None]
  - MENTAL STATUS CHANGES [None]
  - NEUROLOGICAL EXAMINATION ABNORMAL [None]
  - SKIN LACERATION [None]
  - SYNCOPE [None]
  - VOMITING [None]
